FAERS Safety Report 5324313-4 (Version None)
Quarter: 2007Q2

REPORT INFORMATION
  Report Type: 
  Country: None (occurrence: None)
  Receive Date: 20070514
  Receipt Date: 20070502
  Transmission Date: 20071010
  Serious: Yes (Death)
  Sender: FDA-Public Use
  Company Number: NL-BOEHRINGER INGELHEIM PHARMACEUTICALS, INC.-2007-NL-00213NL

PATIENT

DRUGS (1)
  1. SIFROL [Suspect]

REACTIONS (1)
  - DEATH [None]
